FAERS Safety Report 7704043-1 (Version None)
Quarter: 2011Q3

REPORT INFORMATION
  Report Type: 
  Country: None (occurrence: None)
  Receive Date: 20110729
  Receipt Date: 20101229
  Transmission Date: 20111222
  Serious: Yes (Other)
  Sender: FDA-Public Use
  Company Number: US-JNJFOC-20101209317

PATIENT
  Age: 25 Year
  Sex: Female
  Weight: 61.2356 kg

DRUGS (3)
  1. PEPTO BISMOL (BISMUTH SUBSALICYLATE) [Concomitant]
  2. IMODIUM MULTI-SYMPTOM RELIEF [Suspect]
     Indication: DIARRHOEA
     Dosage: 3 DOSE(S), 1 IN 2 HOUR, ORAL
     Route: 048
     Dates: start: 20101227
  3. IMODIUM MULTI-SYMPTOM RELIEF [Suspect]
     Indication: ABDOMINAL PAIN UPPER
     Dosage: 3 DOSE(S), 1 IN 2 HOUR, ORAL
     Route: 048
     Dates: start: 20101227

REACTIONS (3)
  - INAPPROPRIATE SCHEDULE OF DRUG ADMINISTRATION [None]
  - DRUG INEFFECTIVE [None]
  - OVERDOSE [None]
